FAERS Safety Report 10313782 (Version 1)
Quarter: 2014Q3

REPORT INFORMATION
  Report Type: Spontaneous
  Country: GB (occurrence: None)
  Receive Date: 20140716
  Receipt Date: 20140716
  Transmission Date: 20150326
  Serious: Yes (Hospitalization, Disabling, Other)
  Sender: FDA-Public Use
  Company Number: CL-574-2014

PATIENT
  Age: 66 Year
  Sex: Female

DRUGS (16)
  1. ATORVASTATIN [Concomitant]
     Active Substance: ATORVASTATIN
  2. MULTIVITAMIN [Concomitant]
     Active Substance: VITAMINS
  3. FERROUS SULFATE [Concomitant]
     Active Substance: FERROUS SULFATE\FERROUS SULFATE, DRIED
  4. GABAPENTIN. [Concomitant]
     Active Substance: GABAPENTIN
  5. OMEPRAZOLE. [Concomitant]
     Active Substance: OMEPRAZOLE
  6. KETOROLAC [Suspect]
     Active Substance: KETOROLAC\KETOROLAC TROMETHAMINE
     Indication: MUSCLE SPASMS
     Route: 030
  7. KETOROLAC [Suspect]
     Active Substance: KETOROLAC\KETOROLAC TROMETHAMINE
     Indication: PAIN
     Route: 030
  8. LEVOTHYROXINE [Concomitant]
     Active Substance: LEVOTHYROXINE
  9. CARVEDILOL. [Concomitant]
     Active Substance: CARVEDILOL
  10. CARISOPRODOL. [Concomitant]
     Active Substance: CARISOPRODOL
  11. SEROQUEL [Concomitant]
     Active Substance: QUETIAPINE FUMARATE
  12. DOCUSATE [Concomitant]
     Active Substance: DOCUSATE
  13. FENTANYL TRANSDERMAL SYSTEM [Concomitant]
     Active Substance: FENTANYL
  14. FLUOXETINE [Suspect]
     Active Substance: FLUOXETINE\FLUOXETINE HYDROCHLORIDE
  15. FLUOXETINE [Concomitant]
     Active Substance: FLUOXETINE\FLUOXETINE HYDROCHLORIDE
  16. FISH OIL [Concomitant]
     Active Substance: FISH OIL

REACTIONS (8)
  - Sensory loss [None]
  - Quadriplegia [None]
  - Faecal incontinence [None]
  - Procedural pain [None]
  - Drug interaction [None]
  - Urinary incontinence [None]
  - Extradural haematoma [None]
  - Muscle spasms [None]
